FAERS Safety Report 7037570-3 (Version None)
Quarter: 2010Q4

REPORT INFORMATION
  Report Type: 
  Country: None (occurrence: None)
  Receive Date: 20101011
  Receipt Date: 20100920
  Transmission Date: 20110411
  Serious: Yes (Hospitalization)
  Sender: FDA-Public Use
  Company Number: PHHO2010DE15150

PATIENT
  Sex: Female
  Weight: 65 kg

DRUGS (7)
  1. LOPRESSOR [Suspect]
     Indication: HYPERTENSION
     Dosage: 100MG DAILY
     Route: 048
  2. LYRICA [Suspect]
     Indication: NEUROPATHY PERIPHERAL
  3. MANINIL [Suspect]
     Indication: TYPE 2 DIABETES MELLITUS
  4. GLUCOBAY [Concomitant]
  5. MEMANTINE HCL [Concomitant]
  6. CIPRAMIL [Concomitant]
  7. DELIX PLUS [Concomitant]

REACTIONS (7)
  - ACTIVATED PARTIAL THROMBOPLASTIN TIME SHORTENED [None]
  - ALANINE AMINOTRANSFERASE INCREASED [None]
  - ASPARTATE AMINOTRANSFERASE INCREASED [None]
  - FALL [None]
  - HYPOGLYCAEMIA [None]
  - MALAISE [None]
  - NAUSEA [None]
